FAERS Safety Report 14908481 (Version 1)
Quarter: 2018Q2

REPORT INFORMATION
  Report Type: Spontaneous
  Country: JP (occurrence: JP)
  Receive Date: 20180517
  Receipt Date: 20180517
  Transmission Date: 20180711
  Serious: Yes (Other)
  Sender: FDA-Public Use
  Company Number: JP-CLINIGEN GROUP PLC/ CLINIGEN HEALTHCARE LTD-JP-CLGN-18-00210

PATIENT
  Age: 38 Year
  Sex: Male

DRUGS (23)
  1. FOSCARNET SODIUM. [Suspect]
     Active Substance: FOSCARNET SODIUM
     Indication: MENINGITIS VIRAL
  2. GANCICLOVIR. [Suspect]
     Active Substance: GANCICLOVIR
     Indication: MENINGITIS VIRAL
     Route: 042
  3. CMV IMMUNOGLOBULIN [Concomitant]
     Route: 042
  4. CMV IMMUNOGLOBULIN [Concomitant]
     Route: 037
  5. FLUDARABINE [Concomitant]
     Active Substance: FLUDARABINE PHOSPHATE
     Indication: BONE MARROW CONDITIONING REGIMEN
  6. CMV IMMUNOGLOBULIN [Concomitant]
     Indication: CYTOMEGALOVIRUS INFECTION
     Route: 037
  7. IMMUNOGLOBULIN IV [Suspect]
     Active Substance: HUMAN IMMUNOGLOBULIN G
     Indication: MENINGITIS VIRAL
  8. TACROLIMUS. [Concomitant]
     Active Substance: TACROLIMUS
     Route: 042
  9. FOSCARNET SODIUM. [Suspect]
     Active Substance: FOSCARNET SODIUM
     Indication: ANTIVIRAL PROPHYLAXIS
     Route: 042
  10. ANTI-THYMOCYTE GLOBULIN (RABBIT) NOS [Concomitant]
     Active Substance: LAPINE T-LYMPHOCYTE IMMUNE GLOBULIN
     Indication: BONE MARROW CONDITIONING REGIMEN
  11. METHOTREXATE. [Concomitant]
     Active Substance: METHOTREXATE
     Indication: PROPHYLAXIS AGAINST GRAFT VERSUS HOST DISEASE
  12. ETOPOSIDE. [Concomitant]
     Active Substance: ETOPOSIDE
     Indication: BONE MARROW CONDITIONING REGIMEN
  13. LINEZOLID. [Concomitant]
     Active Substance: LINEZOLID
     Indication: MENINGITIS ENTEROCOCCAL
     Route: 042
  14. GANCICLOVIR. [Suspect]
     Active Substance: GANCICLOVIR
     Indication: ANTIVIRAL PROPHYLAXIS
     Route: 042
  15. TACROLIMUS. [Concomitant]
     Active Substance: TACROLIMUS
     Indication: PROPHYLAXIS AGAINST GRAFT VERSUS HOST DISEASE
  16. G-CSF [Concomitant]
     Active Substance: GRANULOCYTE COLONY-STIMULATING FACTOR NOS
     Indication: PRODUCT USED FOR UNKNOWN INDICATION
  17. VANCOMYCIN [Concomitant]
     Active Substance: VANCOMYCIN
     Indication: MENINGITIS ENTEROCOCCAL
     Route: 037
  18. CMV IMMUNOGLOBULIN [Concomitant]
     Indication: MENINGITIS VIRAL
     Route: 042
  19. CMV IMMUNOGLOBULIN [Concomitant]
     Route: 037
  20. FOSCARNET SODIUM. [Suspect]
     Active Substance: FOSCARNET SODIUM
     Indication: CYTOMEGALOVIRUS INFECTION
  21. IMMUNOGLOBULIN IV [Suspect]
     Active Substance: HUMAN IMMUNOGLOBULIN G
     Indication: CYTOMEGALOVIRUS INFECTION
     Route: 042
  22. GANCICLOVIR. [Suspect]
     Active Substance: GANCICLOVIR
     Indication: CYTOMEGALOVIRUS INFECTION
  23. CYCLOPHOSPHAMIDE. [Concomitant]
     Active Substance: CYCLOPHOSPHAMIDE
     Indication: BONE MARROW CONDITIONING REGIMEN

REACTIONS (11)
  - Thrombocytopenia [Unknown]
  - Cytomegalovirus chorioretinitis [None]
  - Pyrexia [None]
  - Sepsis [None]
  - Haemorrhage [Unknown]
  - Renal impairment [Unknown]
  - Headache [None]
  - Off label use [Unknown]
  - General physical health deterioration [None]
  - Eye pain [None]
  - Meningitis viral [None]
